FAERS Safety Report 7908070-0 (Version None)
Quarter: 2011Q4

REPORT INFORMATION
  Report Type: 
  Country: None (occurrence: None)
  Receive Date: 20111111
  Receipt Date: 20111102
  Transmission Date: 20120403
  Serious: Yes (Hospitalization, Other)
  Sender: FDA-Public Use
  Company Number: US-BIOGENIDEC-2011BI035814

PATIENT
  Age: 41 Year
  Sex: Female

DRUGS (2)
  1. TYSABRI [Suspect]
     Indication: MULTIPLE SCLEROSIS
     Route: 042
  2. TYSABRI [Suspect]
     Route: 042
     Dates: start: 20101014

REACTIONS (8)
  - DYSAESTHESIA [None]
  - DISORIENTATION [None]
  - LETHARGY [None]
  - CEPHALO-PELVIC DISPROPORTION [None]
  - AMNESIA [None]
  - FALL [None]
  - HEAD INJURY [None]
  - HYPOREFLEXIA [None]
